FAERS Safety Report 5488101-0 (Version None)
Quarter: 2007Q4

REPORT INFORMATION
  Report Type: 
  Country: None (occurrence: None)
  Receive Date: 20071005
  Receipt Date: 20070813
  Transmission Date: 20080405
  Serious: No
  Sender: FDA-Public Use
  Company Number: PHEH2007US11081

PATIENT
  Age: 70 Year
  Sex: Male
  Weight: 139.7 kg

DRUGS (7)
  1. TEKTURNA [Suspect]
     Dosage: 150 MG, QD, ORAL
     Route: 048
     Dates: end: 20070813
  2. ALLEGRA (FEXOFENADINE HYDROCHLORIDE) [Concomitant]
  3. ATARAX [Concomitant]
  4. SINGULAIR [Concomitant]
  5. DIOVAN HCT (HYDROCHLOROTHIAZIDE, VALSARTAN), 320/25 [Concomitant]
  6. TERAZOSIN HCL [Concomitant]
  7. PULMICORT [Concomitant]

REACTIONS (3)
  - LIBIDO DECREASED [None]
  - ORGANIC ERECTILE DYSFUNCTION [None]
  - PENIS DISORDER [None]
